FAERS Safety Report 19615484 (Version 4)
Quarter: 2021Q3

REPORT INFORMATION
  Report Type: Report from Study
  Country: DE (occurrence: DE)
  Receive Date: 20210727
  Receipt Date: 20210917
  Transmission Date: 20211014
  Serious: Yes (Hospitalization)
  Sender: FDA-Public Use
  Company Number: DE-TAKEDA-2021TUS032554

PATIENT
  Age: 51 Year
  Sex: Male

DRUGS (2)
  1. HUMAN IMMUNOGLOBULIN; HYALURONIDASE [Suspect]
     Active Substance: HUMAN IMMUNOGLOBULIN G\HYALURONIDASE RECOMBINANT HUMAN
     Indication: SECONDARY IMMUNODEFICIENCY
     Dosage: 10 GRAM, MONTHLY
     Route: 058
     Dates: start: 20210517
  2. HUMAN IMMUNOGLOBULIN; HYALURONIDASE [Suspect]
     Active Substance: HUMAN IMMUNOGLOBULIN G\HYALURONIDASE RECOMBINANT HUMAN
     Indication: SELECTIVE IGG SUBCLASS DEFICIENCY

REACTIONS (6)
  - Cystitis [Recovered/Resolved]
  - Infusion site erythema [Recovered/Resolved]
  - Body temperature increased [Recovered/Resolved]
  - Puncture site erythema [Recovered/Resolved]
  - Puncture site pain [Recovered/Resolved]
  - Rhinoplasty [Recovered/Resolved]

NARRATIVE: CASE EVENT DATE: 20210517
